FAERS Safety Report 8360219-4 (Version None)
Quarter: 2012Q2

REPORT INFORMATION
  Report Type: 
  Country: None (occurrence: None)
  Receive Date: 20120515
  Receipt Date: 20120507
  Transmission Date: 20120825
  Serious: Yes (Hospitalization)
  Sender: FDA-Public Use
  Company Number: US-BAYER-2012-007446

PATIENT
  Age: 18 Year
  Sex: Female
  Weight: 54.422 kg

DRUGS (12)
  1. DROSPIRENONE AND ETHINYL ESTRADIOL [Suspect]
     Dosage: UNK
     Dates: start: 20091117
  2. DROSPIRENONE AND ETHINYL ESTRADIOL [Suspect]
     Dosage: UNK
     Dates: start: 20100504
  3. DROSPIRENONE AND ETHINYL ESTRADIOL [Suspect]
     Dosage: UNK
     Dates: start: 20100625
  4. YASMIN [Suspect]
  5. MORPHINE SULFATE [Concomitant]
     Indication: HEADACHE
     Dosage: 2 MG, UNK
     Route: 042
  6. CITALOPRAM HYDROBROMIDE [Concomitant]
  7. PERCOCET [Concomitant]
  8. ACETAMINOPHEN [Concomitant]
     Indication: HEADACHE
  9. DROSPIRENONE AND ETHINYL ESTRADIOL [Suspect]
     Dosage: UNK
     Dates: start: 20100531
  10. DROSPIRENONE AND ETHINYL ESTRADIOL [Suspect]
     Dosage: UNK
     Dates: start: 20100723
  11. ADDERALL 5 [Concomitant]
     Indication: DISTURBANCE IN ATTENTION
     Dosage: UNK
     Dates: start: 20100805
  12. VICODIN [Concomitant]

REACTIONS (7)
  - PAIN [None]
  - ANXIETY [None]
  - CARDIAC DISORDER [None]
  - THROMBOSIS [None]
  - CEREBROVASCULAR ACCIDENT [None]
  - ISCHAEMIC STROKE [None]
  - ATRIAL SEPTAL DEFECT [None]
